FAERS Safety Report 8761054 (Version 2)
Quarter: 2012Q4

REPORT INFORMATION
  Report Type: 
  Country: US (occurrence: US)
  Receive Date: 20120830
  Receipt Date: 20120914
  Transmission Date: 20130627
  Serious: Yes (Other)
  Sender: FDA-Public Use
  Company Number: PHEH2012US016854

PATIENT
  Age: 74 Year
  Sex: Female

DRUGS (6)
  1. DIOVAN [Suspect]
     Indication: BLOOD PRESSURE
     Dosage: 160 mg, QD
     Route: 048
  2. WARFARIN [Concomitant]
     Dosage: 4 g, UNK
  3. METOPROLOL TARTRATE [Concomitant]
     Dosage: UNK UKN, UNK
  4. XANAX [Concomitant]
     Dosage: UNK UKN, UNK
  5. SIMVASTATIN [Concomitant]
     Dosage: UNK UKN, UNK
  6. ASPIRIN [Concomitant]
     Dosage: 81 mg, UNK

REACTIONS (2)
  - Cerebrovascular accident [Unknown]
  - Speech disorder [Unknown]
